FAERS Safety Report 23128936 (Version 1)
Quarter: 2023Q4

REPORT INFORMATION
  Report Type: Spontaneous
  Country: US (occurrence: None)
  Receive Date: 20231030
  Receipt Date: 20231030
  Transmission Date: 20240110
  Serious: Yes (Hospitalization)
  Sender: FDA-Public Use
  Company Number: None

PATIENT
  Sex: Male

DRUGS (1)
  1. TOBI PODHALER [Suspect]
     Active Substance: TOBRAMYCIN
     Indication: Chronic obstructive pulmonary disease
     Dosage: INHALE CONTENTS OF 4 CAPSULES BY MOUTH VIA DEVICE TWICE DAILY?
     Route: 055
     Dates: start: 20230927

REACTIONS (2)
  - Hospitalisation [None]
  - Therapy interrupted [None]
